FAERS Safety Report 6631340-3 (Version None)
Quarter: 2010Q1

REPORT INFORMATION
  Report Type: 
  Country: None (occurrence: None)
  Receive Date: 20100311
  Receipt Date: 20100311
  Transmission Date: 20100710
  Serious: Yes (Hospitalization)
  Sender: FDA-Public Use
  Company Number: None

PATIENT
  Sex: Male
  Weight: 11.6 kg

DRUGS (4)
  1. CARBOPLATIN [Suspect]
     Dosage: 600 MG
  2. ETOPOSIDE [Suspect]
     Dosage: 480 MG
  3. MELPHALAN HYDROCHLORIDE [Suspect]
     Dosage: 72 MG
  4. . [Concomitant]

REACTIONS (10)
  - DILATATION VENTRICULAR [None]
  - FLUID OVERLOAD [None]
  - HYPERTENSION [None]
  - MENTAL STATUS CHANGES [None]
  - OXYGEN SATURATION DECREASED [None]
  - PLEURAL EFFUSION [None]
  - PYREXIA [None]
  - TACHYCARDIA [None]
  - TACHYPNOEA [None]
  - USE OF ACCESSORY RESPIRATORY MUSCLES [None]
